FAERS Safety Report 9794180 (Version 1)
Quarter: 2014Q1

REPORT INFORMATION
  Report Type: Spontaneous
  Country: US (occurrence: US)
  Receive Date: 20140102
  Receipt Date: 20140102
  Transmission Date: 20141002
  Serious: Yes (Other)
  Sender: FDA-Public Use
  Company Number: US-PFIZER INC-2014000241

PATIENT
  Age: 35 Year
  Sex: Male
  Weight: 109 kg

DRUGS (1)
  1. LYRICA [Suspect]
     Indication: NEURALGIA
     Dosage: 200 MG, 3X/DAY

REACTIONS (6)
  - Off label use [Unknown]
  - Lyme disease [Unknown]
  - Rash macular [Unknown]
  - Pain [Unknown]
  - Nausea [Unknown]
  - Influenza [Unknown]
